FAERS Safety Report 5944757-7 (Version None)
Quarter: 2008Q4

REPORT INFORMATION
  Report Type: 
  Country: None (occurrence: None)
  Receive Date: 20081105
  Receipt Date: 20081020
  Transmission Date: 20090506
  Serious: Yes (Hospitalization)
  Sender: FDA-Public Use
  Company Number: DSA_32605_2008

PATIENT
  Sex: Female

DRUGS (1)
  1. CARDIZEM [Suspect]
     Indication: ATRIAL FIBRILLATION
     Dosage: (80 MG BID ORAL), (240 MG BID ORAL)
     Route: 048
     Dates: start: 20080301

REACTIONS (6)
  - DIZZINESS [None]
  - DYSPNOEA [None]
  - FEELING ABNORMAL [None]
  - HEART RATE DECREASED [None]
  - HOT FLUSH [None]
  - PRURITUS [None]
